FAERS Safety Report 4659018-6 (Version None)
Quarter: 2005Q2

REPORT INFORMATION
  Report Type: 
  Country: None (occurrence: None)
  Receive Date: 20050511
  Receipt Date: 20050505
  Transmission Date: 20051028
  Serious: Yes (Other)
  Sender: FDA-Public Use
  Company Number: CA-GLAXOSMITHKLINE-A0557620A

PATIENT
  Age: 33 Year
  Sex: Female

DRUGS (1)
  1. IMITREX [Suspect]
     Indication: DRUG USE FOR UNKNOWN INDICATION
     Dosage: 100MG SINGLE DOSE

REACTIONS (4)
  - ASTHENIA [None]
  - DISORIENTATION [None]
  - DIZZINESS [None]
  - THROAT TIGHTNESS [None]
